FAERS Safety Report 7250897-5 (Version None)
Quarter: 2011Q1

REPORT INFORMATION
  Report Type: 
  Country: None (occurrence: None)
  Receive Date: 20110128
  Receipt Date: 20110125
  Transmission Date: 20110831
  Serious: Yes (Other)
  Sender: FDA-Public Use
  Company Number: A0889101A

PATIENT
  Age: 40 Year
  Sex: Female

DRUGS (2)
  1. ALBUTEROL INHALER [Concomitant]
  2. ADVAIR [Suspect]
     Dosage: 1PUFF SINGLE DOSE
     Route: 055
     Dates: start: 20101026, end: 20101026

REACTIONS (9)
  - ADVERSE REACTION [None]
  - SWOLLEN TONGUE [None]
  - RETCHING [None]
  - CHOKING [None]
  - SWELLING FACE [None]
  - COUGH [None]
  - HYPERSENSITIVITY [None]
  - DRY THROAT [None]
  - VOMITING [None]
